FAERS Safety Report 5875109-6 (Version None)
Quarter: 2008Q3

REPORT INFORMATION
  Report Type: 
  Country: None (occurrence: None)
  Receive Date: 20080909
  Receipt Date: 20080903
  Transmission Date: 20090109
  Serious: Yes (Death, Hospitalization)
  Sender: FDA-Public Use
  Company Number: A0746397A

PATIENT
  Age: 74 Year
  Sex: Male
  Weight: 60 kg

DRUGS (1)
  1. SERETIDE DISKUS [Suspect]
     Route: 055
     Dates: start: 20070601, end: 20070627

REACTIONS (3)
  - CONVULSION [None]
  - DYSPNOEA [None]
  - PNEUMONIA [None]
